FAERS Safety Report 5148664-1 (Version None)
Quarter: 2006Q4

REPORT INFORMATION
  Report Type: 
  Country: None (occurrence: None)
  Receive Date: 20061107
  Receipt Date: 20061027
  Transmission Date: 20070319
  Serious: Yes (Hospitalization)
  Sender: FDA-Public Use
  Company Number: 2006132439

PATIENT
  Sex: Female

DRUGS (1)
  1. NEOSPORIN [Suspect]

REACTIONS (1)
  - UNEVALUABLE EVENT [None]
